FAERS Safety Report 11445568 (Version 1)
Quarter: 2015Q3

REPORT INFORMATION
  Report Type: Spontaneous
  Country: US (occurrence: US)
  Receive Date: 20150902
  Receipt Date: 20150902
  Transmission Date: 20151125
  Serious: No
  Sender: FDA-Public Use
  Company Number: US-SHIRE-US201511053

PATIENT
  Sex: Female

DRUGS (1)
  1. VYVANSE [Suspect]
     Active Substance: LISDEXAMFETAMINE DIMESYLATE
     Indication: BINGE EATING
     Dosage: 30 MG, UNKNOWN
     Route: 048
     Dates: start: 2015, end: 2015

REACTIONS (3)
  - Fatigue [Unknown]
  - Binge eating [Unknown]
  - Condition aggravated [Unknown]

NARRATIVE: CASE EVENT DATE: 2015
